FAERS Safety Report 19994863 (Version 1)
Quarter: 2021Q4

REPORT INFORMATION
  Report Type: Spontaneous
  Country: US (occurrence: US)
  Receive Date: 20211025
  Receipt Date: 20211025
  Transmission Date: 20220303
  Serious: Yes (unspecified)
  Sender: FDA-Public Use
  Company Number: None

PATIENT
  Age: 69 Year
  Sex: Female
  Weight: 75.6 kg

DRUGS (7)
  1. OTEZLA [Suspect]
     Active Substance: APREMILAST
     Indication: Eczema
     Dosage: ?          QUANTITY:1 TABLET(S);
     Route: 048
     Dates: start: 20210324, end: 20210512
  2. ATROVASTIN [Concomitant]
  3. OMEPROSOLE [Concomitant]
  4. CETRALPRAM [Concomitant]
  5. VITAMINS [Concomitant]
     Active Substance: VITAMINS
  6. CALCIUM [Concomitant]
     Active Substance: CALCIUM
  7. VITAMIN C [Concomitant]
     Active Substance: ASCORBIC ACID

REACTIONS (2)
  - Synovial cyst [None]
  - Oedema peripheral [None]

NARRATIVE: CASE EVENT DATE: 20210505
